FAERS Safety Report 19378985 (Version 1)
Quarter: 2021Q2

REPORT INFORMATION
  Report Type: Spontaneous
  Country: US (occurrence: US)
  Receive Date: 20210606
  Receipt Date: 20210606
  Transmission Date: 20210717
  Serious: No
  Sender: FDA-Public Use
  Company Number: US-SUN PHARMACEUTICAL INDUSTRIES LTD-2020R1-270738

PATIENT
  Age: 35 Year
  Sex: Male

DRUGS (1)
  1. OXYCODONE [Suspect]
     Active Substance: OXYCODONE
     Indication: INFLAMMATORY BOWEL DISEASE
     Dosage: 1 OPIATE, DAILY
     Route: 065
     Dates: start: 20090915, end: 20201115

REACTIONS (2)
  - Product use in unapproved indication [Unknown]
  - Constipation [Unknown]

NARRATIVE: CASE EVENT DATE: 20090915
